FAERS Safety Report 23507618 (Version 1)
Quarter: 2024Q1

REPORT INFORMATION
  Report Type: Report from Study
  Country: FR (occurrence: None)
  Receive Date: 20240209
  Receipt Date: 20240209
  Transmission Date: 20240410
  Serious: Yes (Other)
  Sender: FDA-Public Use
  Company Number: 2024A027889

PATIENT

DRUGS (1)
  1. CILGAVIMAB\TIXAGEVIMAB [Suspect]
     Active Substance: CILGAVIMAB\TIXAGEVIMAB
     Indication: COVID-19 prophylaxis
     Dosage: 300 MG/300 MG
     Route: 030

REACTIONS (4)
  - Acquired gene mutation [Unknown]
  - Drug resistance [Unknown]
  - COVID-19 [Unknown]
  - Drug ineffective [Unknown]
